FAERS Safety Report 10014527 (Version 1)
Quarter: 2014Q1

REPORT INFORMATION
  Report Type: Spontaneous
  Country: JP (occurrence: JP)
  Receive Date: 20140317
  Receipt Date: 20140317
  Transmission Date: 20141002
  Serious: Yes (Other)
  Sender: FDA-Public Use
  Company Number: JP-ASTELLAS-2014JP002338

PATIENT
  Age: 41 Year
  Sex: Male

DRUGS (4)
  1. TACROLIMUS [Suspect]
     Indication: IMMUNOSUPPRESSION
     Route: 065
  2. TACROLIMUS [Suspect]
     Indication: CROHN^S DISEASE
     Route: 065
  3. FLUDARABINE [Concomitant]
     Indication: PREMEDICATION
     Route: 065
  4. MELPHALAN [Concomitant]
     Indication: PREMEDICATION
     Route: 065

REACTIONS (3)
  - Off label use [Unknown]
  - Drug ineffective [Unknown]
  - Acute graft versus host disease [Unknown]
